FAERS Safety Report 4743877-2 (Version None)
Quarter: 2005Q3

REPORT INFORMATION
  Report Type: 
  Country: None (occurrence: None)
  Receive Date: 20050809
  Receipt Date: 20050729
  Transmission Date: 20060218
  Serious: Yes (Disabling)
  Sender: FDA-Public Use
  Company Number: 2005109185

PATIENT
  Age: 76 Year
  Sex: Male

DRUGS (5)
  1. SPIRONOLACTONE [Suspect]
     Indication: HYPERTENSION
     Dosage: 25 MG (QD); ORAL
     Route: 048
     Dates: start: 20040101
  2. HALCION [Suspect]
     Indication: INSOMNIA
     Dosage: (0.5 MG, QD); ORAL
     Route: 048
     Dates: start: 20040101
  3. AMLODIPINE [Suspect]
     Indication: HYPERTENSION
     Dosage: 5 MG (5 MG, QD); ORAL
     Route: 048
     Dates: start: 20040101
  4. PRAVASTATIN [Suspect]
     Indication: HYPERCHOLESTEROLAEMIA
     Dosage: 10 MG (10 MG, QD); ORAL
     Route: 048
     Dates: start: 20041022
  5. DEPAS (ETIZOLAM) [Suspect]
     Indication: ARRHYTHMIA
     Dosage: 1 MG (0.5 MG, BID); ORAL
     Route: 048
     Dates: start: 20050209

REACTIONS (1)
  - ANOSMIA [None]
